FAERS Safety Report 19766243 (Version 1)
Quarter: 2021Q3

REPORT INFORMATION
  Report Type: Spontaneous
  Country: US (occurrence: US)
  Receive Date: 20210826
  Receipt Date: 20210826
  Transmission Date: 20211014
  Serious: Yes (Hospitalization)
  Sender: FDA-Public Use
  Company Number: None

PATIENT
  Sex: Male

DRUGS (1)
  1. EMTRICITABINE/TENOF 200/300MG MACLEODS PHARMACEUTICALS [Suspect]
     Active Substance: EMTRICITABINE\TENOFOVIR
     Indication: HIGH RISK SEXUAL BEHAVIOUR
     Dosage: ?          OTHER DOSE:200/300 MG;?
     Route: 048
     Dates: start: 20210525

REACTIONS (1)
  - Hospitalisation [None]
